FAERS Safety Report 7086098-3 (Version None)
Quarter: 2010Q4

REPORT INFORMATION
  Report Type: 
  Country: None (occurrence: None)
  Receive Date: 20101105
  Receipt Date: 20101030
  Transmission Date: 20110411
  Serious: Yes (Other)
  Sender: FDA-Public Use
  Company Number: A0890962A

PATIENT
  Sex: Male

DRUGS (2)
  1. LOVAZA [Suspect]
     Dosage: 4CAP PER DAY
     Route: 065
  2. ASPIRIN [Suspect]
     Dosage: 81MG PER DAY
     Route: 065

REACTIONS (4)
  - COAGULOPATHY [None]
  - DRUG INTERACTION [None]
  - HAEMORRHAGE [None]
  - LACERATION [None]
